FAERS Safety Report 10616549 (Version 1)
Quarter: 2014Q4

REPORT INFORMATION
  Report Type: Spontaneous
  Country: GR (occurrence: GR)
  Receive Date: 20141201
  Receipt Date: 20141201
  Transmission Date: 20150529
  Serious: Yes (Death, Hospitalization)
  Sender: FDA-Public Use
  Company Number: GR-CELGENE-066-50794-14092988

PATIENT
  Sex: Male

DRUGS (3)
  1. BENSERAZIDE [Concomitant]
     Active Substance: BENSERAZIDE
     Route: 065
  2. LEVODOPA [Concomitant]
     Active Substance: LEVODOPA
     Route: 065
  3. VIDAZA [Suspect]
     Active Substance: AZACITIDINE
     Indication: ACUTE MYELOID LEUKAEMIA
     Route: 065

REACTIONS (3)
  - Septic shock [Fatal]
  - Bone marrow infiltration [Unknown]
  - Urinary tract infection [Unknown]
